FAERS Safety Report 23366764 (Version 2)
Quarter: 2024Q1

REPORT INFORMATION
  Report Type: Spontaneous
  Country: CN (occurrence: CN)
  Receive Date: 20240104
  Receipt Date: 20240111
  Transmission Date: 20240410
  Serious: Yes (Other)
  Sender: FDA-Public Use
  Company Number: CN-PFIZER INC-PV202300208053

PATIENT
  Age: 87 Year
  Sex: Female

DRUGS (8)
  1. ZYVOX [Suspect]
     Active Substance: LINEZOLID
     Indication: Femoral neck fracture
     Dosage: 600 MG, 2X/DAY
     Route: 048
     Dates: start: 20231126, end: 20231206
  2. ZYVOX [Suspect]
     Active Substance: LINEZOLID
     Indication: Infection
  3. NAI SHU [Concomitant]
     Indication: Depression
     Dosage: 60 MG, 1X/DAY
     Route: 048
     Dates: start: 20231128, end: 20231214
  4. AGOMELATINE [Concomitant]
     Active Substance: AGOMELATINE
     Indication: Depression
     Dosage: 25 MG, 1X/DAY
     Route: 048
     Dates: start: 20231122, end: 20231128
  5. SERTRALINE [Concomitant]
     Active Substance: SERTRALINE HYDROCHLORIDE
     Dosage: UNK
     Route: 048
     Dates: start: 20231122
  6. DONEPEZIL [Concomitant]
     Active Substance: DONEPEZIL
     Dosage: UNK, 1X/DAY QN
     Route: 048
     Dates: start: 202311
  7. CEFUROXIME [Concomitant]
     Active Substance: CEFUROXIME
     Indication: Prophylaxis
     Dosage: UNK
     Dates: start: 202311
  8. ALPRAZOLAM [Concomitant]
     Active Substance: ALPRAZOLAM
     Dosage: UNK, 1X/DAY (0.4MG-0.8MG QN)

REACTIONS (6)
  - Contraindicated product administered [Recovering/Resolving]
  - Serotonin syndrome [Recovering/Resolving]
  - Basal ganglia infarction [Recovering/Resolving]
  - Demyelination [Recovering/Resolving]
  - Blood calcium decreased [Recovering/Resolving]
  - Blood albumin decreased [Recovering/Resolving]

NARRATIVE: CASE EVENT DATE: 20231126
